FAERS Safety Report 8381880-4 (Version None)
Quarter: 2012Q2

REPORT INFORMATION
  Report Type: 
  Country: None (occurrence: None)
  Receive Date: 20120522
  Receipt Date: 20120522
  Transmission Date: 20120825
  Serious: No
  Sender: FDA-Public Use
  Company Number: None

PATIENT
  Sex: Male
  Weight: 77.1115 kg

DRUGS (1)
  1. ULORIC [Suspect]
     Indication: GOUT
     Dosage: ONE TABLET DAILY
     Dates: start: 20120515, end: 20120515

REACTIONS (1)
  - ARTHRITIS [None]
